FAERS Safety Report 15202031 (Version 1)
Quarter: 2018Q3

REPORT INFORMATION
  Report Type: Spontaneous
  Country: US (occurrence: US)
  Receive Date: 20180627
  Receipt Date: 20180627
  Transmission Date: 20181010
  Serious: No
  Sender: FDA-Public Use
  Company Number: None

PATIENT
  Age: 50 Year
  Sex: Male

DRUGS (4)
  1. DESMOPRESSIN [Suspect]
     Active Substance: DESMOPRESSIN
     Route: 048
     Dates: start: 20180407, end: 20180627
  2. ANDROGEL [Concomitant]
     Active Substance: TESTOSTERONE
  3. LEVOTHYROXINE 137MCG [Concomitant]
     Active Substance: LEVOTHYROXINE
  4. NORTRIPTYLINE 10MG [Concomitant]
     Active Substance: NORTRIPTYLINE

REACTIONS (2)
  - Dehydration [None]
  - Dysuria [None]

NARRATIVE: CASE EVENT DATE: 20180407
